FAERS Safety Report 7832270-1 (Version None)
Quarter: 2011Q4

REPORT INFORMATION
  Report Type: 
  Country: None (occurrence: None)
  Receive Date: 20111022
  Receipt Date: 20111005
  Transmission Date: 20120403
  Serious: Yes (Hospitalization, Other)
  Sender: FDA-Public Use
  Company Number: US-BAYER-2011-050521

PATIENT
  Age: 29 Year
  Sex: Female
  Weight: 48.073 kg

DRUGS (10)
  1. PROPRANOLOL [Concomitant]
     Indication: MITRAL VALVE PROLAPSE
     Dosage: 10 MG, TID, LONG TERM USE
     Route: 048
  2. CIPROFLOXACIN [Concomitant]
     Dosage: 500 MG, UNK
     Dates: start: 20090801
  3. DIPHENOXYLATE HCL AND ATROPINE SULFATE [Concomitant]
     Dosage: UNK
     Dates: start: 20090801
  4. PROMETHAZINE [Concomitant]
     Dosage: 25 MG, UNK
     Dates: start: 20090801
  5. MECLIZINE [Concomitant]
     Dosage: 25 MG, UNK
     Dates: start: 20090801, end: 20091101
  6. PRILOSEC [Concomitant]
     Dosage: DAILY
     Route: 048
  7. XANAX [Concomitant]
     Route: 048
  8. YAZ [Suspect]
     Indication: CONTRACEPTION
  9. YAZ [Suspect]
     Indication: ACNE
     Dosage: UNK
     Dates: start: 20070101, end: 20100101
  10. YAZ [Suspect]
     Indication: PREMENSTRUAL SYNDROME

REACTIONS (4)
  - GALLBLADDER DISORDER [None]
  - INJURY [None]
  - PAIN [None]
  - CHOLECYSTITIS CHRONIC [None]
